FAERS Safety Report 20901991 (Version 1)
Quarter: 2022Q2

REPORT INFORMATION
  Report Type: Report from Study
  Country: US (occurrence: US)
  Receive Date: 20220601
  Receipt Date: 20220601
  Transmission Date: 20220720
  Serious: Yes (Other)
  Sender: FDA-Public Use
  Company Number: US-MYLANLABS-2021M1090684

PATIENT
  Age: 62 Year
  Sex: Female
  Weight: 88.45 kg

DRUGS (5)
  1. GLATIRAMER ACETATE [Suspect]
     Active Substance: GLATIRAMER ACETATE
     Indication: Multiple sclerosis
     Dosage: 40 MILLIGRAM, 3XW
     Route: 058
     Dates: start: 20210625
  2. LISINOPRIL [Concomitant]
     Active Substance: LISINOPRIL
     Indication: Blood pressure abnormal
     Dosage: 1 MILLIGRAM
     Route: 048
  3. VENLAFAXINE HCL [Concomitant]
     Active Substance: VENLAFAXINE HYDROCHLORIDE
     Indication: Depression
     Dosage: 150 MILLIGRAM, QD
     Route: 048
     Dates: start: 200002
  4. MELOXICAM - PRIDINOL TEVA [Concomitant]
     Indication: Pain
     Dosage: 15 MILLIGRAM, QD
     Route: 048
     Dates: start: 2016
  5. LEADER SINUS RELIEF [Concomitant]
     Active Substance: ACETAMINOPHEN\GUAIFENESIN\PHENYLEPHRINE HYDROCHLORIDE
     Indication: Anticoagulant therapy
     Dosage: 81 MILLIGRAM, QD
     Route: 048

REACTIONS (2)
  - Multiple sclerosis [Unknown]
  - Injection site pruritus [Unknown]

NARRATIVE: CASE EVENT DATE: 20210625
